FAERS Safety Report 4466892-5 (Version None)
Quarter: 2004Q4

REPORT INFORMATION
  Report Type: 
  Country: None (occurrence: None)
  Receive Date: 20041001
  Receipt Date: 20040922
  Transmission Date: 20050328
  Serious: Yes (Life-Threatening, Disabling)
  Sender: FDA-Public Use
  Company Number: 04H-163-0274288-00

PATIENT
  Sex: 0

DRUGS (14)
  1. PLEGISOL [Suspect]
     Indication: CARDIOVASCULAR DISORDER
  2. PLEGISOL [Suspect]
     Indication: SURGERY
  3. SODIUM BICARBONATE 8.4% INJECTION, USP, 50MEO TOTAL, 50ML FT VIAL (SOD [Suspect]
     Indication: CARDIOVASCULAR DISORDER
  4. SODIUM BICARBONATE 8.4% INJECTION, USP, 50MEO TOTAL, 50ML FT VIAL (SOD [Suspect]
     Indication: SURGERY
  5. GLUCOSE INJECTION [Suspect]
     Indication: CARDIOVASCULAR DISORDER
  6. GLUCOSE INJECTION [Suspect]
     Indication: SURGERY
  7. GLUTAMATE [Suspect]
  8. ASPARTATE [Suspect]
     Indication: CARDIOVASCULAR DISORDER
  9. ASPARTATE [Suspect]
     Indication: SURGERY
  10. MSA / MSG [Suspect]
     Indication: CARDIOVASCULAR DISORDER
  11. MSA / MSG [Suspect]
     Indication: SURGERY
  12. POTASSIUM CHLORIDE [Suspect]
     Indication: SURGERY
  13. WATER [Suspect]
     Indication: CARDIOVASCULAR DISORDER
  14. WATER [Suspect]
     Indication: SURGERY

REACTIONS (2)
  - BRAIN DAMAGE [None]
  - PROCEDURAL COMPLICATION [None]
